FAERS Safety Report 6986522-8 (Version None)
Quarter: 2010Q3

REPORT INFORMATION
  Report Type: 
  Country: None (occurrence: None)
  Receive Date: 20100827
  Receipt Date: 20091111
  Transmission Date: 20110219
  Serious: Yes (Other)
  Sender: FDA-Public Use
  Company Number: AMAG200900049

PATIENT
  Age: 73 Year
  Sex: Female
  Weight: 64.5 kg

DRUGS (9)
  1. FERAHEME [Suspect]
     Indication: IRON DEFICIENCY ANAEMIA
     Dosage: 510 MG, SINGLE, INTRAVENOUS
     Route: 042
     Dates: start: 20091105, end: 20091105
  2. VITAMIN TAB [Suspect]
     Dosage: 1, QD
  3. HUMALOG INSULIN (INSULIN LISPRO) [Concomitant]
  4. HEPARIN [Concomitant]
  5. RENAGEL [Concomitant]
  6. COREG [Concomitant]
  7. PLAVIX [Concomitant]
  8. NORVASC [Concomitant]
  9. ASPIRIN [Concomitant]

REACTIONS (1)
  - HYPERSENSITIVITY [None]
